FAERS Safety Report 7275851-9 (Version None)
Quarter: 2011Q1

REPORT INFORMATION
  Report Type: 
  Country: None (occurrence: None)
  Receive Date: 20110202
  Receipt Date: 20110202
  Transmission Date: 20110831
  Serious: Yes (Hospitalization)
  Sender: FDA-Public Use
  Company Number: None

PATIENT
  Sex: Female
  Weight: 70.1 kg

DRUGS (12)
  1. SYNTHROID [Concomitant]
  2. ADVAIR [Concomitant]
  3. VENTOLIN [Concomitant]
  4. SPIRIVA [Concomitant]
  5. LORTAB [Concomitant]
  6. BENDAMUSTINE [Suspect]
     Indication: SMALL CELL LUNG CANCER STAGE UNSPECIFIED
     Dosage: DAYS 1 AND 2 IV
     Route: 042
     Dates: start: 20110119
  7. BENDAMUSTINE [Suspect]
     Indication: SMALL CELL LUNG CANCER STAGE UNSPECIFIED
     Dosage: DAYS 1 AND 2 IV
     Route: 042
     Dates: start: 20110120
  8. PHENERGAN [Concomitant]
  9. IRINOTECAN 150MG/M2 PFIZER [Suspect]
     Dosage: EVERY THREE WEEK IV
     Route: 042
     Dates: start: 20110119
  10. MUCINEX [Concomitant]
  11. ALPRAZOLAM [Concomitant]
  12. ALOXI [Concomitant]

REACTIONS (4)
  - VOMITING [None]
  - PYREXIA [None]
  - NAUSEA [None]
  - HEADACHE [None]
